FAERS Safety Report 25974987 (Version 1)
Quarter: 2025Q4

REPORT INFORMATION
  Report Type: Spontaneous
  Country: GB (occurrence: GB)
  Receive Date: 20251029
  Receipt Date: 20251029
  Transmission Date: 20260117
  Serious: Yes (Death, Hospitalization)
  Sender: RECORDATI
  Company Number: GB-RECORDATI RARE DISEASE INC.-2025007567

PATIENT
  Sex: Male

DRUGS (1)
  1. SYLVANT [Suspect]
     Active Substance: SILTUXIMAB
     Indication: Castleman^s disease
     Dosage: 3 WEEKLY
     Route: 042

REACTIONS (1)
  - Myocardial infarction [Fatal]
